FAERS Safety Report 8062688-6 (Version None)
Quarter: 2012Q1

REPORT INFORMATION
  Report Type: 
  Country: None (occurrence: None)
  Receive Date: 20120123
  Receipt Date: 20120116
  Transmission Date: 20120608
  Serious: Yes (Death)
  Sender: FDA-Public Use
  Company Number: US-B.I. PHARMACEUTICALS,INC./RIDGEFIELD-2012-EU-00336GD

PATIENT
  Age: 48 Year
  Sex: Male

DRUGS (7)
  1. GABAPENTIN [Suspect]
     Route: 048
  2. AMITRIPTYLINE HCL [Suspect]
  3. ACETAMINOPHEN AND HYDROCODONE BITARTRATE [Suspect]
     Route: 048
  4. TRICYCLIC ANTIDEPRESSANTS [Suspect]
     Route: 048
  5. TIOTROPIUM [Suspect]
     Route: 048
  6. BUPROPION HYDROCHLORIDE [Suspect]
     Route: 048
  7. METHYLPREDNISOLONE [Suspect]
     Route: 048

REACTIONS (1)
  - DEATH [None]
